FAERS Safety Report 4400518-1 (Version None)
Quarter: 2004Q3

REPORT INFORMATION
  Report Type: 
  Country: None (occurrence: None)
  Receive Date: 20040716
  Receipt Date: 20040716
  Transmission Date: 20050211
  Serious: Yes (Other)
  Sender: FDA-Public Use
  Company Number: None

PATIENT
  Sex: Female
  Weight: 64.4108 kg

DRUGS (3)
  1. CIPROFLOXACIN [Suspect]
     Indication: PLASTIC SURGERY
     Dosage: ORAL BID
     Route: 048
     Dates: start: 20040611, end: 20040618
  2. CIPROFLOXACIN [Suspect]
     Indication: PROPHYLAXIS
     Dosage: ORAL BID
     Route: 048
     Dates: start: 20040611, end: 20040618
  3. CIPROFLOXACIN [Suspect]
     Indication: WOUND
     Dosage: ORAL BID
     Route: 048
     Dates: start: 20040611, end: 20040618

REACTIONS (7)
  - ARTHRALGIA [None]
  - BODY TEMPERATURE DECREASED [None]
  - JOINT EFFUSION [None]
  - JOINT RANGE OF MOTION DECREASED [None]
  - JOINT SWELLING [None]
  - MOBILITY DECREASED [None]
  - SENSATION OF PRESSURE [None]
